FAERS Safety Report 10596077 (Version 2)
Quarter: 2014Q4

REPORT INFORMATION
  Report Type: Report from Study
  Country: US (occurrence: US)
  Receive Date: 20141120
  Receipt Date: 20141120
  Transmission Date: 20150529
  Serious: Yes (Hospitalization, Other)
  Sender: FDA-Public Use
  Company Number: US-GLAXOSMITHKLINE-Z0021621B

PATIENT
  Age: 59 Year
  Weight: 81.6 kg

DRUGS (12)
  1. MORPHINE [Concomitant]
     Active Substance: MORPHINE
     Route: 042
     Dates: start: 20140519, end: 20140522
  2. NAPROXEN. [Concomitant]
     Active Substance: NAPROXEN
     Route: 048
     Dates: start: 20140519, end: 20140522
  3. NORMAL SALINE INJECTION [Concomitant]
     Route: 042
     Dates: start: 20140519, end: 20140522
  4. OXYCODONE-ACETAMINOPHEN [Concomitant]
     Active Substance: ACETAMINOPHEN\OXYCODONE HYDROCHLORIDE
     Route: 048
     Dates: start: 20140519
  5. HEPARIN [Concomitant]
     Active Substance: HEPARIN SODIUM
     Indication: SURGERY
     Route: 042
     Dates: start: 20140520, end: 20140522
  6. ONDANSETRON [Concomitant]
     Active Substance: ONDANSETRON
     Route: 042
     Dates: start: 20140519, end: 20140522
  7. NAPROXEN SODIUM. [Concomitant]
     Active Substance: NAPROXEN SODIUM
     Route: 048
     Dates: start: 20140519, end: 20140519
  8. TRAMETINIB TABLET [Suspect]
     Active Substance: TRAMETINIB
     Indication: MALIGNANT MELANOMA
     Dosage: 2 MG, 1D
     Route: 048
     Dates: start: 20121221
  9. ACETAMINOPHEN. [Concomitant]
     Active Substance: ACETAMINOPHEN
     Route: 048
     Dates: start: 20140519, end: 20140522
  10. HYDROCORTISONE SUPPOSITORY [Concomitant]
     Route: 054
     Dates: start: 20140519, end: 20140522
  11. NORMAL SALINE [Concomitant]
     Active Substance: SODIUM CHLORIDE
     Indication: PROPHYLAXIS
     Route: 042
     Dates: start: 20140519, end: 20140522
  12. OXYCODONE + ACETAMINOPHEN [Concomitant]
     Route: 048
     Dates: start: 20140519

REACTIONS (1)
  - Cellulitis [Recovered/Resolved]

NARRATIVE: CASE EVENT DATE: 20140519
